FAERS Safety Report 25907713 (Version 4)
Quarter: 2025Q4

REPORT INFORMATION
  Report Type: Spontaneous
  Country: JP (occurrence: JP)
  Receive Date: 20251010
  Receipt Date: 20251105
  Transmission Date: 20260118
  Serious: Yes (Hospitalization)
  Sender: BAUSCH AND LOMB
  Company Number: JP-NORGINELIMITED-NOR202503492

PATIENT
  Age: 85 Year
  Sex: Male

DRUGS (2)
  1. MOVIPREP [Suspect]
     Active Substance: ASCORBIC ACID\POLYETHYLENE GLYCOL 3350\POTASSIUM CHLORIDE\SODIUM ASCORBATE\SODIUM CHLORIDE\SODIUM SU
     Indication: Bowel preparation
     Dosage: 2 L, QD
     Route: 048
     Dates: start: 20250926, end: 2025
  2. SENNOSIDES [Concomitant]
     Active Substance: SENNOSIDES
     Indication: Bowel preparation
     Dosage: 24 MG, QD
     Route: 048
     Dates: start: 20250925

REACTIONS (7)
  - Blood creatine phosphokinase increased [Recovered/Resolved]
  - Muscle injury [Recovered/Resolved]
  - Feeling cold [Recovered/Resolved]
  - Seizure [Recovered/Resolved]
  - Nausea [Recovered/Resolved]
  - Hyponatraemia [Recovered/Resolved]
  - Drug ineffective [Unknown]

NARRATIVE: CASE EVENT DATE: 20250926
